FAERS Safety Report 13451507 (Version 5)
Quarter: 2017Q3

REPORT INFORMATION
  Report Type: Spontaneous
  Country: US (occurrence: US)
  Receive Date: 20170418
  Receipt Date: 20170803
  Transmission Date: 20171127
  Serious: No
  Sender: FDA-Public Use
  Company Number: ALCN2017US002743

PATIENT
  Sex: Male

DRUGS (1)
  1. GENTEAL PF [Suspect]
     Active Substance: HYPROMELLOSE 2910 (4000 MPA.S)
     Indication: DRY EYE
     Dosage: (1-2 DROPS PER EYE) GTT
     Route: 047
     Dates: start: 20170410, end: 20170419

REACTIONS (4)
  - Eye irritation [Unknown]
  - Product quality issue [Unknown]
  - Ocular discomfort [Recovered/Resolved]
  - Foreign body in eye [Recovered/Resolved]
